FAERS Safety Report 5668672-1 (Version None)
Quarter: 2008Q1

REPORT INFORMATION
  Report Type: 
  Country: None (occurrence: None)
  Receive Date: 20080312
  Receipt Date: 20080304
  Transmission Date: 20080703
  Serious: Yes (Other)
  Sender: FDA-Public Use
  Company Number: OSCN-NO-0706S-0254

PATIENT
  Age: 51 Year
  Sex: Female

DRUGS (4)
  1. OMNISCAN [Suspect]
     Indication: SHUNT OCCLUSION
     Dosage: NR, SINGLE DOSE, I.V.; 20 ML, SINGLE DOSE, I.V.
     Route: 042
     Dates: start: 20060508, end: 20060508
  2. OMNISCAN [Suspect]
     Indication: SHUNT OCCLUSION
     Dosage: NR, SINGLE DOSE, I.V.; 20 ML, SINGLE DOSE, I.V.
     Route: 042
     Dates: start: 20060822, end: 20060822
  3. OMNISCAN [Suspect]
     Indication: SHUNT OCCLUSION
     Dosage: NR, SINGLE DOSE, I.V.; 20 ML, SINGLE DOSE, I.V.
     Route: 042
     Dates: start: 20070112, end: 20070112
  4. EPOGEN [Concomitant]

REACTIONS (1)
  - NEPHROGENIC SYSTEMIC FIBROSIS [None]
